FAERS Safety Report 6534593-5 (Version None)
Quarter: 2010Q1

REPORT INFORMATION
  Report Type: 
  Country: None (occurrence: None)
  Receive Date: 20100112
  Receipt Date: 20100108
  Transmission Date: 20100710
  Serious: Yes (Other)
  Sender: FDA-Public Use
  Company Number: A0838520A

PATIENT
  Sex: Male

DRUGS (4)
  1. FLOVENT [Suspect]
     Route: 055
     Dates: start: 20000501
  2. FLOVENT [Suspect]
     Dosage: 1PUFF AS REQUIRED
     Route: 055
     Dates: start: 20080201
  3. ADVAIR DISKUS 100/50 [Suspect]
     Route: 055
  4. ALBUTEROL [Concomitant]

REACTIONS (8)
  - ALTERED VISUAL DEPTH PERCEPTION [None]
  - DRUG INEFFECTIVE [None]
  - DYSPNOEA [None]
  - FEELING ABNORMAL [None]
  - FEELING DRUNK [None]
  - HALLUCINATION [None]
  - ILL-DEFINED DISORDER [None]
  - LUNG DISORDER [None]
